FAERS Safety Report 13925468 (Version 4)
Quarter: 2017Q4

REPORT INFORMATION
  Report Type: Report from Study
  Country: None (occurrence: US)
  Receive Date: 20170831
  Receipt Date: 20171020
  Transmission Date: 20180320
  Serious: Yes (Death, Life-Threatening, Hospitalization, Other)
  Sender: FDA-Public Use
  Company Number: US-ABBVIE-17K-163-2088886-00

PATIENT
  Age: 54 Year
  Sex: Male

DRUGS (3)
  1. HUMIRA [Suspect]
     Active Substance: ADALIMUMAB
     Indication: PSORIATIC ARTHROPATHY
  2. HUMIRA [Suspect]
     Active Substance: ADALIMUMAB
     Indication: PSORIASIS
     Route: 058
     Dates: start: 2015, end: 201708
  3. DILAUDID [Suspect]
     Active Substance: HYDROMORPHONE HYDROCHLORIDE
     Indication: ABDOMINAL PAIN
     Route: 042
     Dates: start: 201708, end: 201708

REACTIONS (10)
  - Myocardial infarction [Fatal]
  - Lipase increased [Unknown]
  - Pancreatitis [Not Recovered/Not Resolved]
  - Sepsis [Unknown]
  - Blood triglycerides increased [Unknown]
  - Dysuria [Not Recovered/Not Resolved]
  - Blood viscosity increased [Unknown]
  - Amylase increased [Unknown]
  - Shock [Unknown]
  - Blood pressure decreased [Recovering/Resolving]

NARRATIVE: CASE EVENT DATE: 201708
